FAERS Safety Report 4372218-8 (Version None)
Quarter: 2004Q2

REPORT INFORMATION
  Report Type: 
  Country: None (occurrence: None)
  Receive Date: 20040607
  Receipt Date: 20030409
  Transmission Date: 20050107
  Serious: Yes (Hospitalization, Other)
  Sender: FDA-Public Use
  Company Number: US-BRISTOL-MYERS SQUIBB COMPANY-12244885

PATIENT
  Age: 60 Year
  Sex: Male

DRUGS (16)
  1. STADOL [Suspect]
     Indication: MIGRAINE
     Route: 045
     Dates: start: 19960726
  2. STADOL [Suspect]
     Indication: BACK PAIN
     Route: 045
     Dates: start: 19960726
  3. STADOL [Suspect]
     Indication: MIGRAINE
     Route: 030
     Dates: start: 19961112
  4. STADOL [Suspect]
     Indication: BACK PAIN
     Route: 030
     Dates: start: 19961112
  5. LORAZEPAM [Concomitant]
  6. NEURONTIN [Concomitant]
  7. METOCLOPRAMIDE [Concomitant]
  8. RANITIDINE [Concomitant]
  9. PROCHLORPERAZINE [Concomitant]
  10. AMITRIPTYLINE HCL [Concomitant]
  11. PROPRANOLOL [Concomitant]
  12. ULTRAM [Concomitant]
  13. HYDROXYZINE [Concomitant]
  14. BUTALBITAL + CAFFEINE + ACETAMINOPHEN [Concomitant]
  15. CARISOPRODOL [Concomitant]
  16. PROPOXYPHENE NAPSYLATE [Concomitant]

REACTIONS (2)
  - DEPENDENCE [None]
  - MENTAL DISORDER DUE TO A GENERAL MEDICAL CONDITION [None]
